FAERS Safety Report 6765042-X (Version None)
Quarter: 2010Q2

REPORT INFORMATION
  Report Type: 
  Country: None (occurrence: None)
  Receive Date: 20100609
  Receipt Date: 20100416
  Transmission Date: 20101027
  Serious: No
  Sender: FDA-Public Use
  Company Number: 2010009231

PATIENT
  Age: 6 Year
  Sex: Male

DRUGS (1)
  1. CHILDREN'S ZYRTEC ALLERGY [Suspect]
     Indication: HYPERSENSITIVITY
     Dosage: ONE 5MILLIGRAM CHEWABLE (1 IN 24 HOURS), ORAL
     Route: 048

REACTIONS (2)
  - EXPIRED DRUG ADMINISTERED [None]
  - SOMNOLENCE [None]
